FAERS Safety Report 23040229 (Version 2)
Quarter: 2023Q4

REPORT INFORMATION
  Report Type: Spontaneous
  Country: US (occurrence: US)
  Receive Date: 20231006
  Receipt Date: 20231018
  Transmission Date: 20240109
  Serious: Yes (Other)
  Sender: FDA-Public Use
  Company Number: US-ABBVIE-5429698

PATIENT
  Sex: Female

DRUGS (2)
  1. BOTOX [Suspect]
     Active Substance: ONABOTULINUMTOXINA
     Indication: Product used for unknown indication
     Dosage: TIME INTERVAL: AS NECESSARY
     Route: 065
     Dates: start: 202309, end: 202309
  2. NURTEC ODT [Suspect]
     Active Substance: RIMEGEPANT SULFATE
     Indication: Product used for unknown indication
     Dosage: STRENGTH-100 MG
     Route: 065
     Dates: start: 202308

REACTIONS (9)
  - Eye operation [Unknown]
  - Unevaluable event [Unknown]
  - Nightmare [Unknown]
  - Headache [Unknown]
  - Nausea [Recovering/Resolving]
  - Anxiety disorder [Unknown]
  - Visual field defect [Unknown]
  - Serotonin syndrome [Unknown]
  - Drug ineffective [Unknown]

NARRATIVE: CASE EVENT DATE: 20230101
